FAERS Safety Report 13114719 (Version 2)
Quarter: 2017Q1

REPORT INFORMATION
  Report Type: Report from Study
  Country: US (occurrence: US)
  Receive Date: 20170113
  Receipt Date: 20170118
  Transmission Date: 20170428
  Serious: Yes (Other)
  Sender: FDA-Public Use
  Company Number: US-TAKEDA-2017TUS000801

PATIENT
  Age: 62 Year
  Sex: Female

DRUGS (1)
  1. VORTIOXETINE [Suspect]
     Active Substance: VORTIOXETINE
     Indication: PRODUCT USED FOR UNKNOWN INDICATION
     Dosage: UNK
     Route: 065

REACTIONS (20)
  - Depressed mood [Unknown]
  - Abulia [Unknown]
  - Insomnia [Unknown]
  - Restlessness [Unknown]
  - Feeling abnormal [Unknown]
  - Weight increased [Unknown]
  - Hypersomnia [Unknown]
  - Anxiety [Unknown]
  - Decreased interest [Unknown]
  - Disturbance in attention [Unknown]
  - Bradyphrenia [Unknown]
  - Suicidal ideation [Unknown]
  - Irritability [Unknown]
  - Weight decreased [Unknown]
  - Asthenia [Unknown]
  - Feelings of worthlessness [Unknown]
  - Sexual dysfunction [Unknown]
  - Agitation [Unknown]
  - Memory impairment [Unknown]
  - Therapeutic response decreased [Unknown]
